FAERS Safety Report 25986719 (Version 1)
Quarter: 2025Q4

REPORT INFORMATION
  Report Type: Report from Study
  Country: US (occurrence: None)
  Receive Date: 20251031
  Receipt Date: 20251031
  Transmission Date: 20260118
  Serious: Yes (Other)
  Sender: UCB
  Company Number: US-UCBSA-2025057812

PATIENT
  Age: 54 Year
  Weight: 185 kg

DRUGS (1)
  1. CERTOLIZUMAB PEGOL [Suspect]
     Active Substance: CERTOLIZUMAB PEGOL
     Indication: Product used for unknown indication
     Dosage: 400 MILLIGRAM, EV 4 WEEKS

REACTIONS (3)
  - Allergy to arthropod bite [Recovering/Resolving]
  - Therapeutic response unexpected [Unknown]
  - Product administered at inappropriate site [Unknown]
